FAERS Safety Report 14343372 (Version 3)
Quarter: 2018Q1

REPORT INFORMATION
  Report Type: Spontaneous
  Country: US (occurrence: US)
  Receive Date: 20180102
  Receipt Date: 20180126
  Transmission Date: 20180509
  Serious: Yes (Hospitalization)
  Sender: FDA-Public Use
  Company Number: US-VIFOR (INTERNATIONAL) INC.-VIT-2017-13991

PATIENT
  Age: 49 Year
  Sex: Female
  Weight: 44 kg

DRUGS (3)
  1. MIRCERA [Suspect]
     Active Substance: METHOXY POLYETHYLENE GLYCOL-EPOETIN BETA
     Indication: PRODUCT USED FOR UNKNOWN INDICATION
     Route: 040
     Dates: start: 20171209
  2. MIRCERA [Suspect]
     Active Substance: METHOXY POLYETHYLENE GLYCOL-EPOETIN BETA
     Dosage: FIRST DOSE
     Route: 040
     Dates: start: 20171114
  3. MIRCERA [Suspect]
     Active Substance: METHOXY POLYETHYLENE GLYCOL-EPOETIN BETA
     Dosage: SECOND DOSE
     Route: 040
     Dates: start: 20171212, end: 20171218

REACTIONS (7)
  - Pyrexia [Unknown]
  - Haemoglobin decreased [Unknown]
  - Inappropriate schedule of drug administration [Recovered/Resolved]
  - Mental status changes [Unknown]
  - Lethargy [Unknown]
  - Serum ferritin increased [Unknown]
  - Drug dose omission [Unknown]

NARRATIVE: CASE EVENT DATE: 20171212
